FAERS Safety Report 21160261 (Version 1)
Quarter: 2022Q3

REPORT INFORMATION
  Report Type: Spontaneous
  Country: US (occurrence: US)
  Receive Date: 20220802
  Receipt Date: 20220802
  Transmission Date: 20221027
  Serious: Yes (Congenital Anomaly)
  Sender: FDA-Public Use
  Company Number: US-MYLANLABS-2022M1081694

PATIENT
  Sex: Male

DRUGS (1)
  1. SCOPOLAMINE [Suspect]
     Active Substance: SCOPOLAMINE
     Indication: Nausea
     Dosage: 1 MILLIGRAM, Q3D
     Route: 064
     Dates: start: 20210914

REACTIONS (3)
  - Congenital anomaly [Unknown]
  - Dyspnoea [Recovered/Resolved]
  - Foetal exposure during pregnancy [Unknown]
